FAERS Safety Report 11047952 (Version 1)
Quarter: 2015Q2

REPORT INFORMATION
  Report Type: Spontaneous
  Country: US (occurrence: None)
  Receive Date: 20150417
  Receipt Date: 20150417
  Transmission Date: 20150821
  Serious: Yes (Other)
  Sender: FDA-Public Use
  Company Number: None

PATIENT
  Age: 63 Year
  Sex: Female
  Weight: 76.7 kg

DRUGS (11)
  1. ALBUTEROL/IPRATROPIUM NEB [Concomitant]
  2. LORATADINE. [Concomitant]
     Active Substance: LORATADINE
  3. PROMETHAZINE [Concomitant]
     Active Substance: PROMETHAZINE\PROMETHAZINE HYDROCHLORIDE
  4. AUGMENTIN [Concomitant]
     Active Substance: AMOXICILLIN\CLAVULANATE POTASSIUM
  5. FLUTICASONE/SALMETEROL [Concomitant]
     Active Substance: FLUTICASONE PROPIONATE\SALMETEROL XINAFOATE
  6. CALCIFEROL [Concomitant]
     Active Substance: ERGOCALCIFEROL
  7. TIOTROPIUM [Concomitant]
     Active Substance: TIOTROPIUM
  8. ALBUTEROL. [Concomitant]
     Active Substance: ALBUTEROL
  9. GUAIFENESIN ER [Concomitant]
  10. XOLAIR [Suspect]
     Active Substance: OMALIZUMAB
     Indication: ASTHMA
     Route: 058
     Dates: start: 20150331, end: 20150331
  11. PANTOPRAZOLE [Concomitant]
     Active Substance: PANTOPRAZOLE SODIUM

REACTIONS (6)
  - Immediate post-injection reaction [None]
  - Pruritus [None]
  - Wheezing [None]
  - Paraesthesia oral [None]
  - Erythema [None]
  - Dyspnoea [None]

NARRATIVE: CASE EVENT DATE: 20150331
